FAERS Safety Report 8471666-4 (Version None)
Quarter: 2012Q2

REPORT INFORMATION
  Report Type: 
  Country: None (occurrence: None)
  Receive Date: 20120323
  Receipt Date: 20111202
  Transmission Date: 20120825
  Serious: Yes (Other)
  Sender: FDA-Public Use
  Company Number: 163-21880-11100235

PATIENT
  Age: 61 Year
  Sex: Male

DRUGS (4)
  1. REVLIMID [Suspect]
     Indication: MULTIPLE MYELOMA
     Dosage: 10 MG, 1 IN 1 D, PO, 15 MG, DAYS 1-21 EVERY 28 DAYS, PO, 15 MG, DAYS 1-21 EVERY 28 DAYS, PO
     Route: 048
     Dates: start: 20111119
  2. REVLIMID [Suspect]
     Indication: MULTIPLE MYELOMA
     Dosage: 10 MG, 1 IN 1 D, PO, 15 MG, DAYS 1-21 EVERY 28 DAYS, PO, 15 MG, DAYS 1-21 EVERY 28 DAYS, PO
     Route: 048
     Dates: start: 20101001
  3. REVLIMID [Suspect]
     Indication: MULTIPLE MYELOMA
     Dosage: 10 MG, 1 IN 1 D, PO, 15 MG, DAYS 1-21 EVERY 28 DAYS, PO, 15 MG, DAYS 1-21 EVERY 28 DAYS, PO
     Route: 048
     Dates: start: 20110401
  4. REVLIMID [Suspect]

REACTIONS (2)
  - VENOUS THROMBOSIS [None]
  - THROMBOSIS [None]
